FAERS Safety Report 7726833-1 (Version None)
Quarter: 2011Q3

REPORT INFORMATION
  Report Type: 
  Country: None (occurrence: None)
  Receive Date: 20110902
  Receipt Date: 20110719
  Transmission Date: 20111222
  Serious: Yes (Life-Threatening)
  Sender: FDA-Public Use
  Company Number: DE-GLAXOSMITHKLINE-D0072111A

PATIENT
  Sex: Male
  Weight: 70 kg

DRUGS (1)
  1. VOTRIENT [Suspect]
     Route: 048
     Dates: start: 20110506, end: 20110730

REACTIONS (6)
  - VOMITING [None]
  - WEIGHT DECREASED [None]
  - HYPERTHYROIDISM [None]
  - HYPOTHYROIDISM [None]
  - DIARRHOEA [None]
  - HYPERTENSION [None]
